FAERS Safety Report 4913593-2 (Version None)
Quarter: 2006Q1

REPORT INFORMATION
  Report Type: 
  Country: None (occurrence: None)
  Receive Date: 20060214
  Receipt Date: 20060214
  Transmission Date: 20060701
  Serious: Yes (Congenital Anomaly)
  Sender: FDA-Public Use
  Company Number: None

PATIENT
  Sex: Female

DRUGS (3)
  1. METFORMIN [Suspect]
     Indication: GESTATIONAL DIABETES
     Dosage: 1000 MG ORALLY BID
     Route: 048
     Dates: start: 20050901
  2. NPH INSULIN [Suspect]
     Dosage: 30 UNITS ONCE A DAY
     Dates: start: 20050901
  3. PRENATAL VITAMINS [Concomitant]

REACTIONS (3)
  - CLEFT LIP [None]
  - CLEFT PALATE [None]
  - DRUG EXPOSURE DURING PREGNANCY [None]
